FAERS Safety Report 7476293-3 (Version None)
Quarter: 2011Q2

REPORT INFORMATION
  Report Type: 
  Country: None (occurrence: None)
  Receive Date: 20110512
  Receipt Date: 20110509
  Transmission Date: 20111010
  Serious: Yes (Other)
  Sender: FDA-Public Use
  Company Number: NO-BRISTOL-MYERS SQUIBB COMPANY-15668049

PATIENT
  Sex: Female

DRUGS (1)
  1. KENACORT [Suspect]
     Indication: SEASONAL ALLERGY
     Dosage: 1 DF:1 INJ
     Dates: start: 20110331

REACTIONS (2)
  - ABORTION INDUCED [None]
  - PREGNANCY [None]
